FAERS Safety Report 24359213 (Version 1)
Quarter: 2024Q3

REPORT INFORMATION
  Report Type: Report from Study
  Country: SI (occurrence: SI)
  Receive Date: 20240924
  Receipt Date: 20240924
  Transmission Date: 20241016
  Serious: No
  Sender: Unknown Manufacturer
  Company Number: SI-ROCHE-3344547

PATIENT

DRUGS (11)
  1. PRALSETINIB [Suspect]
     Active Substance: PRALSETINIB
     Indication: Neoplasm
     Dosage: ON 03/MAY/2023, MOST RECENT DOSE PRIOR TO AE WAS TAKEN (400 MG)
     Route: 048
     Dates: start: 20230413, end: 20230503
  2. PRALSETINIB [Suspect]
     Active Substance: PRALSETINIB
     Dosage: ON 13/MAY/2023, MOST RECENT DOSE PRIOR TO AE WAS TAKEN (300 MG)
     Route: 048
     Dates: start: 20230504
  3. PANTOPRAZOLE SODIUM [Concomitant]
     Active Substance: PANTOPRAZOLE SODIUM
     Indication: Product used for unknown indication
     Dosage: 40 MILLIGRAM, QD
     Dates: start: 20230414
  4. MICARDIS [Concomitant]
     Active Substance: TELMISARTAN
     Indication: Hypertension
     Dosage: 40 MILLIGRAM, QD
     Dates: start: 20230414
  5. SERETIDE [Concomitant]
     Active Substance: FLUTICASONE PROPIONATE\SALMETEROL XINAFOATE
     Indication: Asthma
     Dosage: 25/250 MCG/PUFF, 2 PUFFS
     Dates: start: 20230414
  6. KALCIUMKARBONAT [Concomitant]
     Indication: Product used for unknown indication
     Dosage: 1 GRAM, QD
     Dates: start: 20230414
  7. ROSUVASTATIN CALCIUM [Concomitant]
     Active Substance: ROSUVASTATIN CALCIUM
     Indication: Hyperlipidaemia
     Dosage: 5 MILLIGRAM, QD
     Dates: start: 20230414
  8. CHOLECALCIFEROL [Concomitant]
     Active Substance: CHOLECALCIFEROL
     Indication: Product used for unknown indication
     Dates: start: 20230414
  9. NAPROXEN SODIUM [Concomitant]
     Active Substance: NAPROXEN\NAPROXEN SODIUM
     Indication: Pain
     Dosage: 550 MILLIGRAM, BID
     Dates: start: 20230414
  10. XGEVA [Concomitant]
     Active Substance: DENOSUMAB
     Indication: Metastases to bone
     Dosage: 120 MILLIGRAM, 1 IN 1 MONTH
     Route: 058
     Dates: start: 20230414
  11. ACETAMINOPHEN\TRAMADOL HYDROCHLORIDE [Concomitant]
     Active Substance: ACETAMINOPHEN\TRAMADOL HYDROCHLORIDE
     Indication: Pain
     Dosage: 37,5/325 MG
     Dates: start: 20230414

REACTIONS (2)
  - Blood creatinine increased [Recovering/Resolving]
  - Vertigo [Recovering/Resolving]

NARRATIVE: CASE EVENT DATE: 20230503
